FAERS Safety Report 5046821-6 (Version None)
Quarter: 2006Q3

REPORT INFORMATION
  Report Type: 
  Country: None (occurrence: None)
  Receive Date: 20060705
  Receipt Date: 20060705
  Transmission Date: 20061208
  Serious: No
  Sender: FDA-Public Use
  Company Number: None

PATIENT
  Age: 54 Year
  Sex: Female

DRUGS (5)
  1. CODEINE PHOSPHATE AND ACETAMINOPHEN [Suspect]
     Indication: COUGH
     Dosage: 10ML QHS PRN PO
     Route: 048
     Dates: start: 20060328, end: 20060412
  2. CLARITHROMYCIN [Suspect]
     Indication: PNEUMONIA
     Dosage: 500MG PO BID
     Route: 048
     Dates: start: 20060404, end: 20060412
  3. HYDROCHLOROTHIAZIDE [Concomitant]
  4. ATENOLOL [Concomitant]
  5. SALINE NASAL SPRAY [Concomitant]

REACTIONS (6)
  - ANGIONEUROTIC OEDEMA [None]
  - ASTHENIA [None]
  - DYSPHAGIA [None]
  - FATIGUE [None]
  - OEDEMA PERIPHERAL [None]
  - SWOLLEN TONGUE [None]
